APPROVED DRUG PRODUCT: MYCAMINE
Active Ingredient: MICAFUNGIN SODIUM
Strength: EQ 50MG BASE/VIAL
Dosage Form/Route: INJECTABLE;INTRAVENOUS
Application: N021506 | Product #002
Applicant: ASTELLAS PHARMA US INC
Approved: Mar 16, 2005 | RLD: Yes | RS: No | Type: DISCN